FAERS Safety Report 4477549-9 (Version None)
Quarter: 2004Q4

REPORT INFORMATION
  Report Type: 
  Country: None (occurrence: None)
  Receive Date: 20041018
  Receipt Date: 20041004
  Transmission Date: 20050328
  Serious: Yes (Hospitalization)
  Sender: FDA-Public Use
  Company Number: FRWYE085504OCT04

PATIENT
  Age: 76 Year
  Sex: Female
  Weight: 56 kg

DRUGS (5)
  1. ENBREL [Suspect]
     Indication: RHEUMATOID ARTHRITIS
     Dosage: UNKNOWN
     Route: 058
     Dates: start: 20040601, end: 20040604
  2. NOVATREX [Suspect]
     Dosage: UNKNOWN
     Route: 048
     Dates: start: 20031101, end: 20040501
  3. SOTALEX [Concomitant]
     Route: 048
  4. LEVOTHYROX [Concomitant]
     Route: 048
  5. INSULIN [Concomitant]
     Route: 058

REACTIONS (4)
  - ACUTE RESPIRATORY FAILURE [None]
  - INTERSTITIAL LUNG DISEASE [None]
  - PLEURAL EFFUSION [None]
  - PULMONARY FIBROSIS [None]
